FAERS Safety Report 4834092-2 (Version None)
Quarter: 2005Q4

REPORT INFORMATION
  Report Type: 
  Country: None (occurrence: None)
  Receive Date: 20051115
  Receipt Date: 20051031
  Transmission Date: 20060501
  Serious: Yes (Death)
  Sender: FDA-Public Use
  Company Number: 2005S1006982

PATIENT
  Age: 93 Year
  Sex: Female
  Weight: 36.7414 kg

DRUGS (6)
  1. FENTANYL TRANSDERMAL SYSTEM [Suspect]
     Indication: PAIN
     Dosage: 50 MCG/HR; Q3D; TDER
     Route: 062
     Dates: start: 20050707, end: 20050719
  2. FENTANYL TRANSDERMAL SYSTEM [Suspect]
     Indication: PAIN
     Dosage: 100  MCG/HR; Q3D; TDER
     Route: 062
     Dates: start: 20050707, end: 20050719
  3. DOCUSATE SODIUM/SENNA [Concomitant]
  4. OXYCODONE HCL [Concomitant]
  5. PARACETAMOL/HYDROCODONE BITARTRATE [Concomitant]
  6. ALPRAZOLAM [Concomitant]

REACTIONS (4)
  - AGITATION [None]
  - DRUG INEFFECTIVE [None]
  - PAIN [None]
  - PHARMACEUTICAL PRODUCT COMPLAINT [None]
